FAERS Safety Report 9846922 (Version 1)
Quarter: 2013Q4

REPORT INFORMATION
  Report Type: Spontaneous
  Country: US (occurrence: None)
  Receive Date: 20131219
  Receipt Date: 20131219
  Transmission Date: 20140711
  Serious: Yes (Other)
  Sender: FDA-Public Use
  Company Number: 163-20785-13040783

PATIENT
  Age: 69 Year
  Sex: Male

DRUGS (1)
  1. THALOMID (THALIDOMIDE) (50 MILLIGRAM, CAPSULES) [Suspect]
     Indication: PLASMA CELL LEUKAEMIA
     Route: 048
     Dates: start: 20110713

REACTIONS (5)
  - Fall [None]
  - Myalgia [None]
  - Muscular weakness [None]
  - Paraesthesia [None]
  - Hypoaesthesia [None]
